FAERS Safety Report 5874638-9 (Version None)
Quarter: 2008Q3

REPORT INFORMATION
  Report Type: 
  Country: None (occurrence: None)
  Receive Date: 20080829
  Receipt Date: 20061130
  Transmission Date: 20090109
  Serious: Yes (Life-Threatening)
  Sender: FDA-Public Use
  Company Number: 2008S1011173

PATIENT
  Sex: Male

DRUGS (2)
  1. CLARITHROMYCIN [Suspect]
     Indication: DRUG USE FOR UNKNOWN INDICATION
     Dosage: 500 MG
     Dates: start: 20061028, end: 20061028
  2. CEFUROXIME [Suspect]
     Indication: DRUG USE FOR UNKNOWN INDICATION
     Dosage: 750 MG; INTRAVENOUS BOLUS
     Route: 040
     Dates: start: 20061028, end: 20061028

REACTIONS (4)
  - DYSPNOEA [None]
  - HYPERTENSION [None]
  - RESPIRATORY RATE INCREASED [None]
  - WHEEZING [None]
